FAERS Safety Report 7206378-8 (Version None)
Quarter: 2011Q1

REPORT INFORMATION
  Report Type: 
  Country: None (occurrence: None)
  Receive Date: 20110103
  Receipt Date: 20110103
  Transmission Date: 20110831
  Serious: Yes (Hospitalization, Other)
  Sender: FDA-Public Use
  Company Number: PHHO2009IT10863

PATIENT
  Sex: Male
  Weight: 75 kg

DRUGS (7)
  1. LEVOXACIN [Concomitant]
  2. FERROGRAD [Concomitant]
  3. TACHIDOL [Concomitant]
  4. PLACEBO [Suspect]
     Indication: CARCINOID TUMOUR
     Dosage: PLACEBO
     Route: 048
     Dates: start: 20070706, end: 20080723
  5. SANDOSTATIN LAR [Suspect]
     Indication: CARCINOID TUMOUR
     Dosage: DOUBLE BLIND
     Route: 030
     Dates: start: 20080806, end: 20090805
  6. RAD 666 / RAD 001A [Suspect]
     Indication: CARCINOID TUMOUR
     Dosage: OPEN LABEL
     Dates: start: 20080806, end: 20090814
  7. LEDERFOLIN [Concomitant]

REACTIONS (3)
  - NEOPLASM MALIGNANT [None]
  - CHOLECYSTITIS INFECTIVE [None]
  - CHOLECYSTECTOMY [None]
